FAERS Safety Report 7556345-X (Version None)
Quarter: 2011Q2

REPORT INFORMATION
  Report Type: 
  Country: None (occurrence: None)
  Receive Date: 20110615
  Receipt Date: 20110615
  Transmission Date: 20111010
  Serious: Yes (Other)
  Sender: FDA-Public Use
  Company Number: None

PATIENT
  Sex: Male

DRUGS (1)
  1. VANCOMYCIN HCL [Suspect]
     Indication: ARTHRITIS INFECTIVE
     Dosage: 1000MG TWICE DAILY IV
     Route: 042
     Dates: start: 20110529, end: 20110529

REACTIONS (1)
  - ANAPHYLACTIC REACTION [None]
